FAERS Safety Report 18384919 (Version 4)
Quarter: 2020Q4

REPORT INFORMATION
  Report Type: Report from Study
  Country: US (occurrence: US)
  Receive Date: 20201015
  Receipt Date: 20201221
  Transmission Date: 20210114
  Serious: No
  Sender: FDA-Public Use
  Company Number: US-B.I. PHARMACEUTICALS,INC./RIDGEFIELD-2020-BI-046894

PATIENT
  Age: 87 Year
  Sex: Male

DRUGS (5)
  1. PLAVIX [Concomitant]
     Active Substance: CLOPIDOGREL BISULFATE
     Indication: PRODUCT USED FOR UNKNOWN INDICATION
  2. OFEV [Suspect]
     Active Substance: NINTEDANIB
     Indication: IDIOPATHIC PULMONARY FIBROSIS
     Route: 048
     Dates: start: 20200820
  3. OFEV [Suspect]
     Active Substance: NINTEDANIB
     Route: 048
     Dates: start: 20201026
  4. OFEV [Suspect]
     Active Substance: NINTEDANIB
     Route: 048
  5. OFEV [Suspect]
     Active Substance: NINTEDANIB
     Route: 048
     Dates: start: 20200901

REACTIONS (13)
  - Hypertension [Recovered/Resolved]
  - Abdominal pain [Not Recovered/Not Resolved]
  - Feeling abnormal [Unknown]
  - Abdominal discomfort [Unknown]
  - Hypertension [Unknown]
  - Nausea [Unknown]
  - Abdominal distension [Not Recovered/Not Resolved]
  - Diarrhoea [Unknown]
  - Flatulence [Not Recovered/Not Resolved]
  - Hypotension [Not Recovered/Not Resolved]
  - Abdominal distension [Not Recovered/Not Resolved]
  - Abnormal faeces [Unknown]
  - Decreased appetite [Unknown]

NARRATIVE: CASE EVENT DATE: 2020
